FAERS Safety Report 5418297-8 (Version None)
Quarter: 2007Q3

REPORT INFORMATION
  Report Type: 
  Country: None (occurrence: None)
  Receive Date: 20070817
  Receipt Date: 20070514
  Transmission Date: 20080115
  Serious: Yes (Other)
  Sender: FDA-Public Use
  Company Number: GB-MERCK-0705USA02995

PATIENT

DRUGS (1)
  1. PRINIVIL [Suspect]
     Route: 048

REACTIONS (3)
  - DYSPNOEA [None]
  - MOUTH ULCERATION [None]
  - PALPITATIONS [None]
